FAERS Safety Report 19805673 (Version 9)
Quarter: 2023Q4

REPORT INFORMATION
  Report Type: Spontaneous
  Country: JP (occurrence: JP)
  Receive Date: 20210909
  Receipt Date: 20231025
  Transmission Date: 20240110
  Serious: Yes (Hospitalization, Other)
  Sender: FDA-Public Use
  Company Number: JP-JNJFOC-A-CH2018-175440

PATIENT
  Age: 16 Year
  Sex: Male
  Weight: 44.9 kg

DRUGS (47)
  1. ILOPROST [Suspect]
     Active Substance: ILOPROST
     Indication: Pulmonary arterial hypertension
     Dosage: 7.5G/DAY
     Route: 055
  2. ILOPROST [Suspect]
     Active Substance: ILOPROST
     Indication: Pulmonary arterial hypertension
  3. UPTRAVI [Suspect]
     Active Substance: SELEXIPAG
     Indication: Pulmonary arterial hypertension
     Route: 048
     Dates: start: 20171010, end: 20171115
  4. UPTRAVI [Suspect]
     Active Substance: SELEXIPAG
     Indication: Pulmonary arterial hypertension
     Route: 048
     Dates: start: 20171116, end: 20171213
  5. UPTRAVI [Suspect]
     Active Substance: SELEXIPAG
     Indication: Heritable pulmonary arterial hypertension
     Route: 048
     Dates: start: 20171214, end: 20171227
  6. UPTRAVI [Suspect]
     Active Substance: SELEXIPAG
     Route: 048
     Dates: start: 20171228, end: 20180117
  7. UPTRAVI [Suspect]
     Active Substance: SELEXIPAG
     Route: 048
     Dates: start: 20180118, end: 20180214
  8. UPTRAVI [Suspect]
     Active Substance: SELEXIPAG
     Route: 048
     Dates: start: 20180215, end: 20180509
  9. UPTRAVI [Suspect]
     Active Substance: SELEXIPAG
     Route: 048
     Dates: start: 20180510, end: 20180613
  10. UPTRAVI [Suspect]
     Active Substance: SELEXIPAG
     Route: 048
     Dates: start: 20180614, end: 20180718
  11. UPTRAVI [Suspect]
     Active Substance: SELEXIPAG
     Route: 048
     Dates: start: 20180809, end: 20180919
  12. UPTRAVI [Suspect]
     Active Substance: SELEXIPAG
     Route: 048
     Dates: start: 20180920, end: 20181010
  13. UPTRAVI [Suspect]
     Active Substance: SELEXIPAG
     Route: 048
     Dates: start: 20181011, end: 20181107
  14. UPTRAVI [Suspect]
     Active Substance: SELEXIPAG
     Route: 048
     Dates: start: 20181108, end: 20181212
  15. UPTRAVI [Suspect]
     Active Substance: SELEXIPAG
     Route: 048
     Dates: start: 20181213, end: 20190116
  16. UPTRAVI [Suspect]
     Active Substance: SELEXIPAG
     Route: 048
     Dates: start: 20190117, end: 20190220
  17. UPTRAVI [Suspect]
     Active Substance: SELEXIPAG
     Route: 048
     Dates: start: 20190221, end: 20190911
  18. UPTRAVI [Suspect]
     Active Substance: SELEXIPAG
     Route: 048
     Dates: start: 20190912, end: 20191016
  19. UPTRAVI [Suspect]
     Active Substance: SELEXIPAG
     Route: 048
  20. UPTRAVI [Suspect]
     Active Substance: SELEXIPAG
     Route: 048
  21. UPTRAVI [Suspect]
     Active Substance: SELEXIPAG
     Route: 048
  22. UPTRAVI [Suspect]
     Active Substance: SELEXIPAG
     Route: 048
  23. UPTRAVI [Suspect]
     Active Substance: SELEXIPAG
     Route: 048
  24. UPTRAVI [Suspect]
     Active Substance: SELEXIPAG
     Route: 048
  25. UPTRAVI [Suspect]
     Active Substance: SELEXIPAG
     Route: 048
     Dates: start: 20191017
  26. OPSUMIT [Suspect]
     Active Substance: MACITENTAN
     Indication: Pulmonary arterial hypertension
     Route: 048
     Dates: start: 20160602
  27. FLOLAN [Suspect]
     Active Substance: EPOPROSTENOL SODIUM
     Indication: Pulmonary arterial hypertension
     Route: 041
     Dates: end: 20180131
  28. FLOLAN [Suspect]
     Active Substance: EPOPROSTENOL SODIUM
     Indication: Pulmonary arterial hypertension
     Route: 041
     Dates: start: 20180201, end: 20180227
  29. FLOLAN [Suspect]
     Active Substance: EPOPROSTENOL SODIUM
     Indication: Heritable pulmonary arterial hypertension
     Route: 041
     Dates: start: 20180228, end: 20180307
  30. FLOLAN [Suspect]
     Active Substance: EPOPROSTENOL SODIUM
     Route: 041
     Dates: start: 20180308, end: 20180323
  31. FLOLAN [Suspect]
     Active Substance: EPOPROSTENOL SODIUM
     Route: 041
     Dates: start: 20180324, end: 20180401
  32. FLOLAN [Suspect]
     Active Substance: EPOPROSTENOL SODIUM
     Route: 041
     Dates: start: 20180402, end: 20180509
  33. FLOLAN [Suspect]
     Active Substance: EPOPROSTENOL SODIUM
     Route: 041
     Dates: start: 20180510, end: 20180523
  34. FLOLAN [Suspect]
     Active Substance: EPOPROSTENOL SODIUM
     Route: 041
     Dates: start: 20180524, end: 20180613
  35. FLOLAN [Suspect]
     Active Substance: EPOPROSTENOL SODIUM
     Route: 041
     Dates: start: 20180614
  36. FLOLAN [Suspect]
     Active Substance: EPOPROSTENOL SODIUM
     Route: 042
  37. FLOLAN [Suspect]
     Active Substance: EPOPROSTENOL SODIUM
     Route: 042
  38. ADEMPAS [Suspect]
     Active Substance: RIOCIGUAT
     Indication: Pulmonary arterial hypertension
     Route: 048
  39. ADEMPAS [Suspect]
     Active Substance: RIOCIGUAT
     Indication: Pulmonary arterial hypertension
     Route: 048
  40. TREPROSTINIL [Concomitant]
     Active Substance: TREPROSTINIL
     Indication: Pulmonary arterial hypertension
  41. WARFARIN [Concomitant]
     Active Substance: WARFARIN
     Dosage: 4 MG, QD
     Dates: end: 20171116
  42. DIGOXIN [Concomitant]
     Active Substance: DIGOXIN
     Dosage: 0.3 MG, QD
     Dates: end: 20171010
  43. BISOPROLOL [Concomitant]
     Active Substance: BISOPROLOL\BISOPROLOL FUMARATE
     Route: 048
     Dates: start: 20171010
  44. BISOPROLOL [Concomitant]
     Active Substance: BISOPROLOL\BISOPROLOL FUMARATE
     Route: 048
  45. EPOPROSTENOL SODIUM [Concomitant]
     Active Substance: EPOPROSTENOL SODIUM
     Dosage: UNK-UNK
     Route: 042
  46. EPOPROSTENOL SODIUM [Concomitant]
     Active Substance: EPOPROSTENOL SODIUM
     Dosage: UNK-UNK
     Route: 042
  47. EPOPROSTENOL SODIUM [Concomitant]
     Active Substance: EPOPROSTENOL SODIUM
     Dosage: UNK-ONGOING
     Route: 042

REACTIONS (8)
  - Hyperthyroidism [Recovering/Resolving]
  - Pulmonary arterial hypertension [Recovering/Resolving]
  - Hyperthyroidism [Recovered/Resolved]
  - Photophobia [Recovered/Resolved]
  - Off label use [Unknown]
  - Product use issue [Unknown]
  - Decreased appetite [Unknown]
  - Weight decreased [Unknown]

NARRATIVE: CASE EVENT DATE: 20180403
